FAERS Safety Report 5676519-2 (Version None)
Quarter: 2008Q1

REPORT INFORMATION
  Report Type: 
  Country: None (occurrence: None)
  Receive Date: 20080324
  Receipt Date: 20080312
  Transmission Date: 20080703
  Serious: Yes (Other)
  Sender: FDA-Public Use
  Company Number: TR-RANBAXY-2008RR-13710

PATIENT

DRUGS (3)
  1. ISOTRETINOIN [Suspect]
     Indication: ACNE
     Dosage: 30 MG, QD
  2. ISOTRETINOIN [Suspect]
     Dosage: 40 MG, QD
  3. NAPROXEN [Concomitant]
     Dosage: 500 MG, QD

REACTIONS (2)
  - POLYNEUROPATHY [None]
  - SACROILIITIS [None]
